FAERS Safety Report 8595684-0 (Version None)
Quarter: 2012Q3

REPORT INFORMATION
  Report Type: 
  Country: None (occurrence: None)
  Receive Date: 20120815
  Receipt Date: 20120814
  Transmission Date: 20120928
  Serious: Yes (Hospitalization)
  Sender: FDA-Public Use
  Company Number: DE-ROCHE-1056271

PATIENT
  Sex: Female
  Weight: 49 kg

DRUGS (10)
  1. IRINOTECAN HCL [Suspect]
     Indication: COLON CANCER
     Dosage: LAST DOSE PRIOR TO SAE 05/MAR/2012, LAST ADMINISTERED DOSE: 165 MG/M2
     Route: 042
     Dates: start: 20120104, end: 20120724
  2. IRINOTECAN HCL [Suspect]
     Dosage: LAST DOSE PRIOR TO SAE 05/MAR/2012, LAST ADMINISTERED DOSE: 165 MG/M2
     Route: 042
     Dates: start: 20120814
  3. AVASTIN [Suspect]
     Indication: COLON CANCER
     Dosage: LAST DOSE PRIOR TO SAE 05/MAR/2012, LAST DOSE ADMINISTERED 50 MG/KG
     Route: 042
     Dates: start: 20120104, end: 20120724
  4. OXALIPLATIN [Suspect]
     Indication: COLON CANCER
     Dosage: LAST DOSE PRIOR TO SAE 05/MAR/2012, LAST DOSE ADMINISTERED 85 MG/M2
     Route: 042
     Dates: start: 20120104, end: 20120724
  5. LEUCOVORIN CALCIUM [Suspect]
     Dates: start: 20120814
  6. FLUOROURACIL [Suspect]
     Route: 042
     Dates: start: 20120814
  7. OXALIPLATIN [Suspect]
     Route: 042
     Dates: start: 20120814
  8. LEUCOVORIN CALCIUM [Suspect]
     Indication: COLON CANCER
     Dosage: LAST DOSE PRIOR TO SAE 05/MAR/2012, LAST ADMINISTERED DOSE: 200 MG/M2
     Dates: start: 20120104, end: 20120724
  9. AVASTIN [Suspect]
     Route: 042
     Dates: start: 20120814
  10. FLUOROURACIL [Suspect]
     Indication: COLON CANCER
     Dosage: LAST DOSE PRIOR TO SAE 05/MAR/2012, LAST ADMINISTERED DOSE: 3200 MG
     Route: 042
     Dates: start: 20120104, end: 20120724

REACTIONS (2)
  - CHOLECYSTITIS ACUTE [None]
  - HYPERBILIRUBINAEMIA [None]
